FAERS Safety Report 6386105-7 (Version None)
Quarter: 2009Q4

REPORT INFORMATION
  Report Type: 
  Country: None (occurrence: None)
  Receive Date: 20091002
  Receipt Date: 20081212
  Transmission Date: 20100525
  Serious: No
  Sender: FDA-Public Use
  Company Number: US-ASTRAZENECA-2008UW27885

PATIENT
  Sex: Female

DRUGS (13)
  1. ARIMIDEX [Suspect]
     Indication: BREAST CANCER
     Route: 048
     Dates: start: 20080608
  2. ACETAMINOPHEN [Concomitant]
  3. LIPITOR [Concomitant]
  4. ATENOLOL [Concomitant]
  5. CALCIUM W/D [Concomitant]
  6. ASPIRIN [Concomitant]
  7. IRON [Concomitant]
  8. ONE A DAY VITAMIN [Concomitant]
  9. PREVACID [Concomitant]
  10. GLUCOTROL [Concomitant]
  11. LASIX [Concomitant]
  12. ZOLOFT [Concomitant]
  13. ZYRTEC [Concomitant]

REACTIONS (2)
  - HAIR TEXTURE ABNORMAL [None]
  - MUSCULAR WEAKNESS [None]
